FAERS Safety Report 7831804-0 (Version None)
Quarter: 2011Q4

REPORT INFORMATION
  Report Type: 
  Country: None (occurrence: None)
  Receive Date: 20111021
  Receipt Date: 20111012
  Transmission Date: 20120403
  Serious: Yes (Hospitalization, Other)
  Sender: FDA-Public Use
  Company Number: US-CELGENEUS-163-21880-11091595

PATIENT
  Sex: Male

DRUGS (25)
  1. CITALOPRAM HYDROBROMIDE [Concomitant]
     Dosage: 10 MILLIGRAM
     Route: 048
  2. HYDROCODONE BITARTRATE AND ACETAMINOPHEN [Concomitant]
     Dosage: 10-325MG
     Route: 048
  3. SIMVASTATIN [Concomitant]
     Dosage: 40 MILLIGRAM
     Route: 048
  4. ASPIRIN [Concomitant]
     Dosage: 81 MILLIGRAM
     Route: 048
  5. AMBIEN CR [Concomitant]
     Dosage: 12.5 MILLIGRAM
     Route: 048
  6. SENOKOT [Concomitant]
     Route: 048
  7. ZOFRAN ODT [Concomitant]
     Dosage: 8 MILLIGRAM
     Route: 048
  8. REVLIMID [Suspect]
     Indication: MULTIPLE MYELOMA
     Dosage: 25 MILLIGRAM
     Route: 048
     Dates: start: 20110720
  9. DEXAMETHASONE [Concomitant]
     Route: 048
  10. ATENOLOL [Concomitant]
     Dosage: 25 MILLIGRAM
     Route: 048
  11. DESMOPRESSIN [Concomitant]
     Route: 055
  12. LIDOCAINE-HYDROCORTISONE AC [Concomitant]
     Route: 061
  13. REVLIMID [Suspect]
     Dosage: 5 MILLIGRAM
     Route: 048
     Dates: start: 20110801, end: 20110801
  14. MIRALAX [Concomitant]
     Dosage: 17 GRAM
     Route: 048
  15. MUPIROCIN [Concomitant]
     Route: 061
  16. ONDANSETRON [Concomitant]
     Dosage: 4 MILLIGRAM
     Route: 048
  17. RENVELA [Concomitant]
     Dosage: 800 MILLIGRAM
     Route: 048
  18. HYDRALAZINE HCL [Concomitant]
     Dosage: 25 MILLIGRAM
     Route: 048
  19. RED BLOOD CELLS [Concomitant]
     Route: 041
     Dates: start: 20110819
  20. SYNTHROID [Concomitant]
     Dosage: 100 MICROGRAM
     Route: 048
  21. CYANOCOBALAMIN [Concomitant]
     Dosage: 1000 MICROGRAM
     Route: 065
  22. NEPHROCAPS [Concomitant]
     Dosage: 1 CAPSULE
     Route: 048
  23. TRAZODONE HYDROCHLORIDE [Concomitant]
     Dosage: 150 MILLIGRAM
     Route: 048
  24. HYDROMORPHONE HCL [Concomitant]
     Dosage: 2 MILLIGRAM
     Route: 048
  25. SALINE NASAL [Concomitant]
     Route: 045

REACTIONS (2)
  - PNEUMONIA ASPIRATION [None]
  - DYSPHAGIA [None]
